FAERS Safety Report 14014377 (Version 1)
Quarter: 2017Q3

REPORT INFORMATION
  Report Type: Spontaneous
  Country: US (occurrence: US)
  Receive Date: 20170926
  Receipt Date: 20170926
  Transmission Date: 20171128
  Serious: Yes (Other)
  Sender: FDA-Public Use
  Company Number: None

PATIENT
  Age: 58 Year
  Sex: Male
  Weight: 81 kg

DRUGS (10)
  1. GABAPENTIN. [Concomitant]
     Active Substance: GABAPENTIN
  2. ONDANSETRON [Concomitant]
     Active Substance: ONDANSETRON
  3. WARFARIN [Concomitant]
     Active Substance: WARFARIN
  4. BISACODYL. [Concomitant]
     Active Substance: BISACODYL
  5. MIRALAX [Concomitant]
     Active Substance: POLYETHYLENE GLYCOL 3350
  6. VEDOLIZUMAB [Suspect]
     Active Substance: VEDOLIZUMAB
     Indication: CROHN^S DISEASE
     Dates: start: 20160801, end: 20161001
  7. METRONIDAZOLE. [Concomitant]
     Active Substance: METRONIDAZOLE
  8. NEOMYCIN [Concomitant]
     Active Substance: NEOMYCIN
  9. OMEPRAZOLE. [Concomitant]
     Active Substance: OMEPRAZOLE
  10. AZATHIOPRINE. [Concomitant]
     Active Substance: AZATHIOPRINE

REACTIONS (7)
  - Pain [None]
  - Balance disorder [None]
  - Paraesthesia [None]
  - Peripheral coldness [None]
  - Hypoaesthesia [None]
  - Hypersensitivity [None]
  - Neuropathy peripheral [None]

NARRATIVE: CASE EVENT DATE: 20160801
